FAERS Safety Report 11640304 (Version 2)
Quarter: 2016Q1

REPORT INFORMATION
  Report Type: Spontaneous
  Country: JP (occurrence: JP)
  Receive Date: 20151019
  Receipt Date: 20160129
  Transmission Date: 20160525
  Serious: Yes (Hospitalization, Other)
  Sender: FDA-Public Use
  Company Number: JP-GLAXOSMITHKLINE-JP2015JPN145502

PATIENT
  Age: 73 Year
  Sex: Male

DRUGS (5)
  1. SAMITREL [Suspect]
     Active Substance: ATOVAQUONE
     Indication: PNEUMOCYSTIS JIROVECII PNEUMONIA
     Dosage: UNK
     Route: 048
     Dates: start: 20141224
  2. FLUCYTOSINE. [Concomitant]
     Active Substance: FLUCYTOSINE
  3. AMPHOTERICIN B. [Concomitant]
     Active Substance: AMPHOTERICIN B
  4. GANCICLOVIR. [Suspect]
     Active Substance: GANCICLOVIR
  5. PREDONINE [Concomitant]
     Active Substance: PREDNISOLONE\PREDNISOLONE ACETATE\PREDNISOLONE SODIUM SUCCINATE

REACTIONS (4)
  - Pleural effusion [Recovering/Resolving]
  - Respiratory failure [Recovering/Resolving]
  - Febrile neutropenia [Recovering/Resolving]
  - Pyrexia [Recovering/Resolving]

NARRATIVE: CASE EVENT DATE: 20150115
